FAERS Safety Report 21854121 (Version 3)
Quarter: 2023Q4

REPORT INFORMATION
  Report Type: Spontaneous
  Country: CA (occurrence: CA)
  Receive Date: 20230112
  Receipt Date: 20231109
  Transmission Date: 20240109
  Serious: Yes (Hospitalization)
  Sender: FDA-Public Use
  Company Number: CA-TEVA-2023-CA-2843157

PATIENT
  Sex: Male

DRUGS (3)
  1. ENTACAPONE [Suspect]
     Active Substance: ENTACAPONE
     Indication: Parkinson^s disease
     Route: 065
  2. LOPERAMIDE [Suspect]
     Active Substance: LOPERAMIDE
     Indication: Diarrhoea
     Route: 065
  3. OCTREOTIDE [Suspect]
     Active Substance: OCTREOTIDE
     Indication: Diarrhoea
     Route: 065

REACTIONS (5)
  - Colitis microscopic [Recovered/Resolved]
  - Hypovolaemia [Recovering/Resolving]
  - Hypokalaemia [Recovering/Resolving]
  - Renal failure [Recovering/Resolving]
  - Drug ineffective [Unknown]
